FAERS Safety Report 6430469-2 (Version None)
Quarter: 2009Q4

REPORT INFORMATION
  Report Type: 
  Country: None (occurrence: None)
  Receive Date: 20091106
  Receipt Date: 20091102
  Transmission Date: 20100525
  Serious: Yes (Other)
  Sender: FDA-Public Use
  Company Number: US-ELI_LILLY_AND_COMPANY-US200911000420

PATIENT
  Sex: Male

DRUGS (14)
  1. HUMALOG [Suspect]
     Dosage: 10 U, 3/D
     Dates: start: 20040101
  2. HUMALOG [Suspect]
     Dosage: UNK, AS NEEDED
     Dates: start: 20040101
  3. HUMALOG [Suspect]
     Dosage: 10 U, 3/D
     Dates: start: 20040101
  4. HUMALOG [Suspect]
     Dosage: UNK, AS NEEDED
     Dates: start: 20040101
  5. ALENDRONATE SODIUM [Concomitant]
     Dosage: 70 MG, WEEKLY (1/W)
  6. AMITRIPTYLINE [Concomitant]
     Dosage: 75 MG, EACH EVENING
  7. GABAPENTIN [Concomitant]
     Dosage: 300 MG, DAILY (1/D)
  8. LANTUS [Concomitant]
     Dosage: 24 U, EACH EVENING
  9. LISINOPRIL [Concomitant]
     Dosage: 10 MG, DAILY (1/D)
  10. NAPROXEN [Concomitant]
     Dosage: 500 MG, 3/D
  11. NYSTATIN [Concomitant]
     Dosage: 6 ML, 4/D
  12. PERCOCET-5 [Concomitant]
     Dosage: 1 D/F, EVERY 4 HRS AS NEEDED
  13. PRILOSEC [Concomitant]
     Dosage: 20 MG, DAILY (1/D)
  14. TRAMADOL HCL [Concomitant]
     Dosage: 100 MG, EVERY 6 HRS AS NEEDED

REACTIONS (6)
  - BLOOD GLUCOSE INCREASED [None]
  - COMA [None]
  - GALLBLADDER DISORDER [None]
  - INTERVERTEBRAL DISC PROTRUSION [None]
  - MEDICATION ERROR [None]
  - WRONG TECHNIQUE IN DRUG USAGE PROCESS [None]
